FAERS Safety Report 9473567 (Version 3)
Quarter: 2014Q1

REPORT INFORMATION
  Report Type: Spontaneous
  Country: US (occurrence: US)
  Receive Date: 20130823
  Receipt Date: 20140310
  Transmission Date: 20141002
  Serious: Yes (Other)
  Sender: FDA-Public Use
  Company Number: US-BAYER-2013-101951

PATIENT
  Age: 24 Year
  Sex: Female
  Weight: 97.51 kg

DRUGS (4)
  1. YASMIN [Suspect]
     Dosage: UNK
  2. TOPAMAX [Concomitant]
     Dosage: 50 MG, DAILY
     Route: 048
     Dates: start: 200704
  3. FLUOXETINE [Concomitant]
     Dosage: 100 MG, DAILY
     Route: 048
     Dates: start: 200704
  4. MOTRIN [Concomitant]
     Dosage: UNK
     Route: 048
     Dates: start: 200704

REACTIONS (1)
  - Deep vein thrombosis [None]
